FAERS Safety Report 7557037-3 (Version None)
Quarter: 2011Q2

REPORT INFORMATION
  Report Type: 
  Country: None (occurrence: None)
  Receive Date: 20110620
  Receipt Date: 20110608
  Transmission Date: 20111010
  Serious: Yes (Death, Life-Threatening)
  Sender: FDA-Public Use
  Company Number: JP-GENZYME-THYM-1002513

PATIENT
  Sex: Male
  Weight: 45 kg

DRUGS (5)
  1. METHYLPREDNISOLONE SODIUM SUCCINATE [Concomitant]
     Indication: PREMEDICATION
     Dosage: 125 MG, QD
     Route: 065
     Dates: start: 20110524, end: 20110527
  2. ITRACONAZOLE [Concomitant]
     Indication: PROPHYLAXIS
     Dosage: UNK
     Route: 065
     Dates: start: 20110525, end: 20110528
  3. THYMOGLOBULIN [Suspect]
     Indication: APLASTIC ANAEMIA
     Dosage: 3 MG/KG, QD
     Route: 042
     Dates: start: 20110524, end: 20110527
  4. CYCLOSPORINE [Concomitant]
     Indication: APLASTIC ANAEMIA
     Dosage: UNK
     Route: 065
     Dates: start: 20110328, end: 20110528
  5. SULFAMETHOPRIM [Concomitant]
     Indication: PROPHYLAXIS
     Dosage: UNK
     Route: 065
     Dates: start: 20110523, end: 20110528

REACTIONS (2)
  - ENTEROCOCCAL SEPSIS [None]
  - PULMONARY HAEMORRHAGE [None]
